FAERS Safety Report 8934243 (Version 1)
Quarter: 2012Q4

REPORT INFORMATION
  Report Type: 
  Country: US (occurrence: US)
  Receive Date: 20121129
  Receipt Date: 20121129
  Transmission Date: 20130627
  Serious: No
  Sender: FDA-Public Use
  Company Number: US-009507513-1211USA011385

PATIENT
  Age: 39 Year
  Sex: Male

DRUGS (4)
  1. VICTRELIS [Suspect]
     Indication: CHRONIC HEPATITIS C
     Dosage: 800 mg, tid
     Route: 048
     Dates: start: 20121101
  2. PRILOSEC [Concomitant]
  3. PROPRANOLOL HYDROCHLORIDE [Concomitant]
  4. TRAMADOL HYDROCHLORIDE [Concomitant]

REACTIONS (2)
  - Regurgitation [Unknown]
  - Pharyngitis [Unknown]
